FAERS Safety Report 8818710 (Version 1)
Quarter: 2012Q4

REPORT INFORMATION
  Report Type: 
  Country: US (occurrence: US)
  Receive Date: 20121001
  Receipt Date: 20121001
  Transmission Date: 20130627
  Serious: No
  Sender: FDA-Public Use
  Company Number: US-BAYER-2012-102137

PATIENT
  Age: 67 Year
  Sex: Female
  Weight: 77.1 kg

DRUGS (8)
  1. BETASERON [Suspect]
     Dosage: 0.3 mg, QOD
     Route: 058
  2. TEKTURNA [Concomitant]
     Dosage: 150 mg, UNK
     Route: 048
  3. BYSTOLIC [Concomitant]
     Dosage: 2.5 mg, UNK
     Route: 048
  4. AZOR [AMLODIPINE BESILATE,OLMESARTAN MEDOXOMIL] [Concomitant]
     Dosage: 5-20mg
     Route: 048
  5. CRESTOR [Concomitant]
     Dosage: 20 mg, UNK
     Route: 048
  6. LEVOTHYROXIN [Concomitant]
     Dosage: 150mcg
     Route: 048
  7. BACLOFEN [Concomitant]
     Dosage: 10 mg, UNK
     Route: 048
  8. CENTRUM SILVER [Concomitant]
     Route: 048

REACTIONS (3)
  - Vertigo [Unknown]
  - Injection site erythema [Unknown]
  - Injection site mass [Unknown]
